FAERS Safety Report 17459832 (Version 1)
Quarter: 2020Q1

REPORT INFORMATION
  Report Type: Spontaneous
  Country: US (occurrence: US)
  Receive Date: 20200213
  Receipt Date: 20200213
  Transmission Date: 20200409
  Serious: Yes (Hospitalization)
  Sender: FDA-Public Use
  Company Number: None

PATIENT
  Age: 34 Year
  Sex: Male

DRUGS (4)
  1. TRIKAFTA [Concomitant]
     Active Substance: ELEXACAFTOR\IVACAFTOR\TEZACAFTOR
  2. TOBRAMYCIN 300MG/5 ML [Suspect]
     Active Substance: TOBRAMYCIN
     Indication: CYSTIC FIBROSIS
     Dosage: ?          OTHER STRENGTH:300MG/5ML;OTHER DOSE:300MG/5ML;?
     Route: 055
     Dates: start: 20151124
  3. CAYSTON [Concomitant]
     Active Substance: AZTREONAM
  4. PULMOZYME [Suspect]
     Active Substance: DORNASE ALFA
     Indication: CYSTIC FIBROSIS
     Dosage: ?          OTHER STRENGTH:1MG/1ML;OTHER DOSE:1MG/1ML;?
     Route: 055
     Dates: start: 20160413

REACTIONS (1)
  - Influenza [None]

NARRATIVE: CASE EVENT DATE: 20200131
